FAERS Safety Report 20012487 (Version 1)
Quarter: 2021Q4

REPORT INFORMATION
  Report Type: Spontaneous
  Country: US (occurrence: US)
  Receive Date: 20211029
  Receipt Date: 20211029
  Transmission Date: 20220303
  Serious: No
  Sender: FDA-Public Use
  Company Number: US-PFIZER INC-202101311687

PATIENT
  Age: 64 Year
  Sex: Male

DRUGS (2)
  1. BOSULIF [Suspect]
     Active Substance: BOSUTINIB MONOHYDRATE
     Dosage: 100 MG
     Dates: start: 20200511
  2. BOSULIF [Suspect]
     Active Substance: BOSUTINIB MONOHYDRATE
     Dosage: 100 MG
     Dates: start: 20201014

REACTIONS (1)
  - Diarrhoea [Recovering/Resolving]
